FAERS Safety Report 20909846 (Version 2)
Quarter: 2022Q3

REPORT INFORMATION
  Report Type: Report from Study
  Country: US (occurrence: US)
  Receive Date: 20220603
  Receipt Date: 20220808
  Transmission Date: 20221027
  Serious: Yes (Death)
  Sender: FDA-Public Use
  Company Number: US-NOVARTISPH-NVSC2022US127210

PATIENT
  Age: 32 Year
  Sex: Female

DRUGS (1)
  1. LUTATHERA [Suspect]
     Active Substance: LUTETIUM OXODOTREOTIDE LU-177
     Indication: Product used for unknown indication
     Dosage: UNK (2 DOSES)
     Route: 042
     Dates: start: 20211216, end: 20220210

REACTIONS (1)
  - Death [Fatal]

NARRATIVE: CASE EVENT DATE: 20220510
